FAERS Safety Report 7068979 (Version 2)
Quarter: 2014Q3

REPORT INFORMATION
  Report Type: Spontaneous
  Country: US (occurrence: None)
  Receive Date: 20090724
  Receipt Date: 20140725
  Transmission Date: 20150326
  Serious: Yes (Hospitalization, Other)
  Sender: FDA-Public Use
  Company Number: 2009S1005518

PATIENT
  Age: 50 Year
  Sex: Female
  Weight: 120 kg

DRUGS (3)
  1. PHOSPHO-SODA [Suspect]
     Active Substance: SODIUM PHOSPHATE, DIBASIC\SODIUM PHOSPHATE, MONOBASIC
     Indication: HYSTERECTOMY
     Route: 048
     Dates: start: 20070422, end: 20070422
  2. PERCOCET (PARACETAMOL, OXYCODONE HYDROCHLORIDE, OXYCODONE TEREPHTHALATE) [Concomitant]
  3. SEROQUEL [Concomitant]
     Active Substance: QUETIAPINE FUMARATE

REACTIONS (8)
  - Hypotension [None]
  - Renal tubular necrosis [None]
  - Blood potassium increased [None]
  - Anaemia [None]
  - Lethargy [None]
  - Renal impairment [None]
  - Blood calcium decreased [None]
  - Blood sodium decreased [None]

NARRATIVE: CASE EVENT DATE: 20070424
